FAERS Safety Report 19071355 (Version 4)
Quarter: 2025Q2

REPORT INFORMATION
  Report Type: Spontaneous
  Country: FR (occurrence: FR)
  Receive Date: 20210330
  Receipt Date: 20250427
  Transmission Date: 20250717
  Serious: Yes (Death, Hospitalization, Other)
  Sender: AUROBINDO
  Company Number: FR-GRUNENTHAL-2021-262430

PATIENT
  Age: 1 Month

DRUGS (2)
  1. TRAMADOL [Suspect]
     Active Substance: TRAMADOL
     Indication: Product used for unknown indication
     Route: 065
  2. HYDROXYZINE [Concomitant]
     Active Substance: HYDROXYZINE HYDROCHLORIDE
     Indication: Product used for unknown indication
     Route: 065

REACTIONS (5)
  - Death [Fatal]
  - Toxicity to various agents [Fatal]
  - Malaise [Unknown]
  - Somnolence [Unknown]
  - Product use issue [Unknown]
